FAERS Safety Report 13089338 (Version 2)
Quarter: 2017Q1

REPORT INFORMATION
  Report Type: Spontaneous
  Country: US (occurrence: US)
  Receive Date: 20170105
  Receipt Date: 20170131
  Transmission Date: 20170428
  Serious: No
  Sender: FDA-Public Use
  Company Number: US-PFIZER INC-2017002591

PATIENT
  Age: 70 Year
  Sex: Male

DRUGS (4)
  1. TYGACIL [Suspect]
     Active Substance: TIGECYCLINE
     Indication: MYCOBACTERIUM ABSCESSUS INFECTION
     Dosage: 0.2MG/ML (AS REPORTED), 1X/DAY
     Dates: start: 20160826
  2. AMIKACIN SULFATE. [Concomitant]
     Active Substance: AMIKACIN SULFATE
     Dosage: 250MG/ML (AS REPORTED), 2X/DAY
  3. IMIPENEM AND CILASTATIN [Concomitant]
     Active Substance: CILASTATIN SODIUM\IMIPENEM
     Dosage: 5 MG/ML (AS REPORTED), 3X/DAY
  4. TYGACIL [Suspect]
     Active Substance: TIGECYCLINE
     Indication: ASPERGILLUS INFECTION

REACTIONS (1)
  - Drug ineffective for unapproved indication [Not Recovered/Not Resolved]
